FAERS Safety Report 5859694-6 (Version None)
Quarter: 2008Q3

REPORT INFORMATION
  Report Type: 
  Country: None (occurrence: None)
  Receive Date: 20080827
  Receipt Date: 20080820
  Transmission Date: 20090109
  Serious: Yes (Hospitalization)
  Sender: FDA-Public Use
  Company Number: US-WATSON-2008-05026

PATIENT
  Age: 11 Month

DRUGS (3)
  1. PREDNISONE TAB [Suspect]
     Indication: INFANTILE SPASMS
     Dosage: 12 MG, BID WITH 4 WEEK TAPER
     Route: 065
  2. PREDNISONE TAB [Suspect]
     Dosage: 3 MG, BID
     Route: 065
  3. ACTH [Suspect]
     Indication: INFANTILE SPASMS
     Dosage: UNK
     Route: 065

REACTIONS (2)
  - HYPERCALCAEMIA [None]
  - WITHDRAWAL SYNDROME [None]
